FAERS Safety Report 5765328-1 (Version None)
Quarter: 2008Q2

REPORT INFORMATION
  Report Type: 
  Country: None (occurrence: None)
  Receive Date: 20080609
  Receipt Date: 20080609
  Transmission Date: 20081010
  Serious: Yes (Other)
  Sender: FDA-Public Use
  Company Number: None

PATIENT
  Age: 60 Year
  Sex: Female
  Weight: 68.0396 kg

DRUGS (1)
  1. ONE A DAY WOMEN'S 55+ ADVANTAGE    BAYER [Suspect]
     Indication: VITAMIN SUPPLEMENTATION
     Dosage: 1 TABLET  EACH DAY PO
     Route: 048
     Dates: start: 20080501, end: 20080529

REACTIONS (3)
  - DYSPNOEA [None]
  - PHARMACEUTICAL PRODUCT COMPLAINT [None]
  - VENTRICULAR EXTRASYSTOLES [None]
